FAERS Safety Report 12223838 (Version 1)
Quarter: 2016Q1

REPORT INFORMATION
  Report Type: Spontaneous
  Country: US (occurrence: US)
  Receive Date: 20160330
  Receipt Date: 20160330
  Transmission Date: 20160526
  Serious: No
  Sender: FDA-Public Use
  Company Number: US-009507513-1603USA002022

PATIENT
  Sex: Male

DRUGS (2)
  1. PRINIVIL [Suspect]
     Active Substance: LISINOPRIL
     Dosage: 1.5 TABLETS (60 MG) BY MOUTH DAILY
     Route: 048
     Dates: start: 20150409
  2. ASPIRIN. [Suspect]
     Active Substance: ASPIRIN
     Dosage: 1 TABLET (81 MG) BY MOUTH DAILY
     Route: 048
     Dates: start: 20150409

REACTIONS (1)
  - Adverse event [Unknown]
